FAERS Safety Report 9644715 (Version 3)
Quarter: 2013Q4

REPORT INFORMATION
  Report Type: Spontaneous
  Country: CZ (occurrence: CZ)
  Receive Date: 20131025
  Receipt Date: 20131113
  Transmission Date: 20140711
  Serious: Yes (Hospitalization, Other)
  Sender: FDA-Public Use
  Company Number: CZ-BAYER-2013-125673

PATIENT
  Age: 31 Year
  Sex: Female

DRUGS (2)
  1. MIRENA [Suspect]
     Indication: CONTRACEPTION
     Dosage: 20 MCG/24HR, CONT
     Route: 015
     Dates: start: 20130521, end: 20131014
  2. MIRENA [Suspect]
     Indication: MENSTRUATION IRREGULAR

REACTIONS (8)
  - Urinary tract infection [Recovering/Resolving]
  - Menopausal symptoms [Recovering/Resolving]
  - Vertigo [Recovering/Resolving]
  - Breast discomfort [Recovering/Resolving]
  - Chest discomfort [Recovering/Resolving]
  - Fatigue [Recovering/Resolving]
  - Flushing [Recovering/Resolving]
  - Menstruation irregular [Recovering/Resolving]
